FAERS Safety Report 20432842 (Version 2)
Quarter: 2022Q2

REPORT INFORMATION
  Report Type: Spontaneous
  Country: US (occurrence: US)
  Receive Date: 20220205
  Receipt Date: 20220415
  Transmission Date: 20220721
  Serious: Yes (Death)
  Sender: FDA-Public Use
  Company Number: US-CHIESI-2022CHF00506

PATIENT
  Sex: Female
  Weight: 51 kg

DRUGS (15)
  1. FERRIPROX [Suspect]
     Active Substance: DEFERIPRONE
     Indication: Anaemia
     Dosage: 1000 MILLIGRAM, BID
     Dates: start: 20210122
  2. FERRIPROX [Suspect]
     Active Substance: DEFERIPRONE
     Indication: Chronic kidney disease
     Dosage: 1000 MILLIGRAM
     Dates: start: 20191213
  3. FERRIPROX [Suspect]
     Active Substance: DEFERIPRONE
     Indication: Sickle cell anaemia
  4. FERRIPROX [Suspect]
     Active Substance: DEFERIPRONE
     Indication: Haemochromatosis
  5. FERRIPROX [Suspect]
     Active Substance: DEFERIPRONE
     Indication: Transfusion
  6. TUMS [Concomitant]
     Active Substance: CALCIUM CARBONATE
     Indication: Product used for unknown indication
     Dosage: UNK
  7. VITAMIN D NOS [Concomitant]
     Active Substance: VITAMIN D NOS
     Indication: Product used for unknown indication
     Dosage: UNK
  8. VELTASSA [Concomitant]
     Active Substance: PATIROMER
     Indication: Product used for unknown indication
     Dosage: UNK
  9. SODIUM BICARBONATE [Concomitant]
     Active Substance: SODIUM BICARBONATE
     Indication: Product used for unknown indication
     Dosage: UNK
  10. RENVELA [Concomitant]
     Active Substance: SEVELAMER CARBONATE
     Indication: Product used for unknown indication
     Dosage: UNK
  11. ONDANSETRON [Concomitant]
     Active Substance: ONDANSETRON
     Indication: Product used for unknown indication
     Dosage: UNK
  12. METOPROLOL [Concomitant]
     Active Substance: METOPROLOL
     Indication: Product used for unknown indication
     Dosage: UNK
  13. ISOSORBIDE MONONITRATE [Concomitant]
     Active Substance: ISOSORBIDE MONONITRATE
     Indication: Product used for unknown indication
     Dosage: UNK
  14. FOLIC ACID [Concomitant]
     Active Substance: FOLIC ACID
     Indication: Product used for unknown indication
     Dosage: UNK
  15. DILAUDID [Concomitant]
     Active Substance: HYDROMORPHONE HYDROCHLORIDE
     Indication: Product used for unknown indication
     Dosage: UNK

REACTIONS (2)
  - Cardiac arrest [Fatal]
  - Unresponsive to stimuli [Fatal]
